FAERS Safety Report 16710096 (Version 1)
Quarter: 2019Q4

REPORT INFORMATION
  Report Type: Spontaneous
  Country: US (occurrence: US)
  Receive Date: 20190815
  Receipt Date: 20190815
  Transmission Date: 20200122
  Serious: Yes (Other)
  Sender: FDA-Public Use
  Company Number: None

PATIENT
  Age: 69 Year
  Sex: Male

DRUGS (10)
  1. LORAZEPAM TAB 1 MG [Concomitant]
  2. AMLODIPINE TAB 5 MG [Concomitant]
  3. TAZANIDINE CAP 4 MG [Concomitant]
  4. ALLOPURINOL TAB 300 MG [Concomitant]
  5. VASCEPA CAP 0.5 GM [Concomitant]
  6. ATORVASTATIN TAB 80 MG [Concomitant]
  7. CHLORTHALID TAB 25 MG [Concomitant]
  8. IMATINIB. [Suspect]
     Active Substance: IMATINIB MESYLATE
     Indication: ACUTE MYELOID LEUKAEMIA
     Route: 048
     Dates: start: 20180223
  9. LISINOPRIL TAB 40 MG [Concomitant]
  10. LEVOTHROXINE TAB 50 MCG [Concomitant]

REACTIONS (1)
  - Prostate cancer [None]
